FAERS Safety Report 11619684 (Version 2)
Quarter: 2015Q4

REPORT INFORMATION
  Report Type: Spontaneous
  Country: US (occurrence: US)
  Receive Date: 20151012
  Receipt Date: 20151117
  Transmission Date: 20160304
  Serious: Yes (Death)
  Sender: FDA-Public Use
  Company Number: US-INCYTE CORPORATION-2015IN005182

PATIENT
  Age: 80 Year
  Sex: Male
  Weight: 72.3 kg

DRUGS (5)
  1. JAKAFI [Suspect]
     Active Substance: RUXOLITINIB
     Dosage: 20 MG, BID
     Route: 048
     Dates: start: 20140902, end: 201508
  2. MORPHINE [Concomitant]
     Active Substance: MORPHINE
  3. FENTANYL                           /00174602/ [Concomitant]
     Active Substance: FENTANYL
  4. DACOGEN [Concomitant]
     Active Substance: DECITABINE
  5. HYDREA [Concomitant]
     Active Substance: HYDROXYUREA

REACTIONS (1)
  - Disease progression [Fatal]

NARRATIVE: CASE EVENT DATE: 20150821
